FAERS Safety Report 15741957 (Version 1)
Quarter: 2018Q4

REPORT INFORMATION
  Report Type: Spontaneous
  Country: US (occurrence: US)
  Receive Date: 20181204
  Receipt Date: 20181204
  Transmission Date: 20190205
  Serious: No
  Sender: FDA-Public Use
  Company Number: None

PATIENT
  Sex: Female

DRUGS (1)
  1. SOMATULINE DEPOT [Suspect]
     Active Substance: LANREOTIDE ACETATE
     Indication: NEUROENDOCRINE CARCINOMA
     Dosage: ?          OTHER STRENGTH:120/5 MG/M;?
     Route: 058
     Dates: start: 20181002

REACTIONS (4)
  - Hypertension [None]
  - Balance disorder [None]
  - Myalgia [None]
  - Headache [None]
